FAERS Safety Report 14668571 (Version 1)
Quarter: 2018Q1

REPORT INFORMATION
  Report Type: Report from Study
  Country: DE (occurrence: DE)
  Receive Date: 20180322
  Receipt Date: 20180322
  Transmission Date: 20180509
  Serious: Yes (Death, Other)
  Sender: FDA-Public Use
  Company Number: DE-ADIENNEP-2017AD000126

PATIENT
  Sex: Male

DRUGS (3)
  1. MELPHALAN. [Suspect]
     Active Substance: MELPHALAN
     Indication: BONE MARROW CONDITIONING REGIMEN
     Dosage: 60 MG/M2 DAILY
  2. THIOTEPA. [Suspect]
     Active Substance: THIOTEPA
     Indication: BONE MARROW CONDITIONING REGIMEN
     Dosage: 2 DOSAGES 5 MG/KG DAILY
  3. CLOFARABINE. [Suspect]
     Active Substance: CLOFARABINE
     Indication: BONE MARROW CONDITIONING REGIMEN
     Dosage: 30 MG/M2 DAILY

REACTIONS (3)
  - Mucosal inflammation [Unknown]
  - Infection [Fatal]
  - Candida sepsis [Unknown]
